FAERS Safety Report 17956215 (Version 2)
Quarter: 2020Q3

REPORT INFORMATION
  Report Type: Spontaneous
  Country: US (occurrence: US)
  Receive Date: 20200629
  Receipt Date: 20200717
  Transmission Date: 20201103
  Serious: No
  Sender: FDA-Public Use
  Company Number: US-VERTEX PHARMACEUTICALS-2020-013624

PATIENT
  Sex: Female
  Weight: 54 kg

DRUGS (1)
  1. TRIKAFTA [Suspect]
     Active Substance: ELEXACAFTOR\IVACAFTOR\TEZACAFTOR
     Indication: CYSTIC FIBROSIS
     Dosage: 2 TABS (100 MG ELEXA/ 50 MG TEZA/ 75 MG IVA) AM, 1 TAB (150MG IVA) PM
     Route: 048
     Dates: start: 202002

REACTIONS (2)
  - Abdominal pain [Unknown]
  - Eating disorder [Unknown]
